FAERS Safety Report 24155668 (Version 3)
Quarter: 2024Q4

REPORT INFORMATION
  Report Type: Report from Study
  Country: BE (occurrence: BE)
  Receive Date: 20240731
  Receipt Date: 20241129
  Transmission Date: 20250115
  Serious: Yes (Hospitalization)
  Sender: ROCHE
  Company Number: BE-ROCHE-10000033474

PATIENT
  Age: 28 Year
  Sex: Female
  Weight: 107 kg

DRUGS (11)
  1. OCRELIZUMAB [Suspect]
     Active Substance: OCRELIZUMAB
     Indication: Relapsing-remitting multiple sclerosis
     Dosage: DOSE LAST STUDY DRUG ADMIN PRIOR TO AE 11/OCT /2023
     Route: 042
     Dates: start: 20200916
  2. OCRELIZUMAB [Suspect]
     Active Substance: OCRELIZUMAB
     Route: 042
     Dates: start: 20200930
  3. OCRELIZUMAB [Suspect]
     Active Substance: OCRELIZUMAB
     Dosage: H0043
     Route: 042
     Dates: start: 20210331
  4. OCRELIZUMAB [Suspect]
     Active Substance: OCRELIZUMAB
     Route: 042
     Dates: start: 20210929
  5. OCRELIZUMAB [Suspect]
     Active Substance: OCRELIZUMAB
     Route: 042
     Dates: start: 20221012
  6. OCRELIZUMAB [Suspect]
     Active Substance: OCRELIZUMAB
     Route: 042
     Dates: start: 20230412
  7. OCRELIZUMAB [Suspect]
     Active Substance: OCRELIZUMAB
     Route: 042
     Dates: start: 20220413
  8. OCRELIZUMAB [Suspect]
     Active Substance: OCRELIZUMAB
     Route: 042
     Dates: start: 20231011
  9. CYANOCOBALAMIN\FOLIC ACID\PYRIDOXINE HYDROCHLORIDE [Concomitant]
     Active Substance: CYANOCOBALAMIN\FOLIC ACID\PYRIDOXINE HYDROCHLORIDE
     Route: 048
     Dates: start: 20200414
  10. ETHINYL ESTRADIOL\LEVONORGESTREL ACETATE [Concomitant]
     Active Substance: ETHINYL ESTRADIOL\LEVONORGESTREL ACETATE
     Indication: Contraception
     Route: 048
  11. AMOXICILLIN [Concomitant]
     Active Substance: AMOXICILLIN
     Indication: Adverse event
     Dates: start: 20240720

REACTIONS (1)
  - Pneumonia [Recovering/Resolving]

NARRATIVE: CASE EVENT DATE: 20240716
